FAERS Safety Report 16570975 (Version 1)
Quarter: 2019Q3

REPORT INFORMATION
  Report Type: Spontaneous
  Country: NO (occurrence: NO)
  Receive Date: 20190715
  Receipt Date: 20190715
  Transmission Date: 20191004
  Serious: Yes (Other)
  Sender: FDA-Public Use
  Company Number: NO-PFIZER INC-2019293372

PATIENT
  Age: 51 Year
  Sex: Female
  Weight: 80 kg

DRUGS (4)
  1. ATACAND [Concomitant]
     Active Substance: CANDESARTAN CILEXETIL
     Dates: start: 20090901
  2. RITALIN [Concomitant]
     Active Substance: METHYLPHENIDATE HYDROCHLORIDE
     Dates: start: 201006
  3. ARTHROTEC [Suspect]
     Active Substance: DICLOFENAC SODIUM\MISOPROSTOL
     Indication: INFLAMMATION
     Dosage: 10 MG, 2X/DAY
     Dates: start: 20190601, end: 20190608
  4. AMLODIPIN SANDOZ [AMLODIPINE BESILATE] [Concomitant]
     Dates: start: 20100101

REACTIONS (1)
  - Gastrointestinal vascular malformation haemorrhagic [Recovering/Resolving]

NARRATIVE: CASE EVENT DATE: 20190608
